FAERS Safety Report 12437402 (Version 1)
Quarter: 2016Q2

REPORT INFORMATION
  Report Type: Other
  Country: TR (occurrence: TR)
  Receive Date: 20160606
  Receipt Date: 20160606
  Transmission Date: 20160815
  Serious: Yes (Other)
  Sender: FDA-Public Use
  Company Number: TR-LUPIN PHARMACEUTICALS INC.-2016-02383

PATIENT
  Age: 34 Year
  Sex: Female

DRUGS (3)
  1. CLARITHROMYCIN. [Suspect]
     Active Substance: CLARITHROMYCIN
     Indication: UPPER RESPIRATORY TRACT INFECTION
     Route: 065
  2. PARACETAMOL/PHENYLEPHRINE/CHLORPHENIRAMINE [Interacting]
     Active Substance: ACETAMINOPHEN\CHLORPHENIRAMINE MALEATE\PHENYLEPHRINE HYDROCHLORIDE
     Indication: UPPER RESPIRATORY TRACT INFECTION
     Route: 065
  3. BUTAMIRATE CITRATE [Concomitant]
     Active Substance: BUTAMIRATE CITRATE
     Indication: UPPER RESPIRATORY TRACT INFECTION
     Route: 065

REACTIONS (6)
  - Drug interaction [Unknown]
  - Hallucinations, mixed [Recovered/Resolved]
  - Disorganised speech [Recovered/Resolved]
  - Anxiety [Recovered/Resolved]
  - Inappropriate affect [Recovered/Resolved]
  - Insomnia [Recovered/Resolved]
